FAERS Safety Report 13092625 (Version 2)
Quarter: 2017Q1

REPORT INFORMATION
  Report Type: Spontaneous
  Country: US (occurrence: US)
  Receive Date: 20170106
  Receipt Date: 20170314
  Transmission Date: 20170428
  Serious: No
  Sender: FDA-Public Use
  Company Number: US-JNJFOC-20161203349

PATIENT
  Sex: Male
  Weight: 74.84 kg

DRUGS (5)
  1. BENICAR [Concomitant]
     Active Substance: OLMESARTAN MEDOXOMIL
     Indication: ATRIAL FIBRILLATION
     Dosage: 6-8 MONTHS
     Route: 065
  2. ELIQUIS [Concomitant]
     Active Substance: APIXABAN
     Indication: ATRIAL FIBRILLATION
     Dosage: OVER 1 YEAR
     Route: 065
  3. TYLENOL 8 HR ARTHRITIS PAIN [Suspect]
     Active Substance: ACETAMINOPHEN
     Indication: NECK PAIN
     Dosage: 1X NIGHTLY FOR 3-4 DAYS??STARTED APPROX. FIRST WEEK OF DEC-2016
     Route: 048
     Dates: start: 201612
  4. TYLENOL 8 HR ARTHRITIS PAIN [Suspect]
     Active Substance: ACETAMINOPHEN
     Indication: BACK PAIN
     Dosage: 1X NIGHTLY FOR 3-4 DAYS??STARTED APPROX. FIRST WEEK OF DEC-2016
     Route: 048
     Dates: start: 201612
  5. ARYTHMOL [Concomitant]
     Active Substance: PROPAFENONE HYDROCHLORIDE
     Indication: ATRIAL FIBRILLATION
     Dosage: OVER 1 YEAR
     Route: 065

REACTIONS (3)
  - Inappropriate schedule of drug administration [Unknown]
  - Headache [Not Recovered/Not Resolved]
  - Incorrect dose administered [Unknown]
